FAERS Safety Report 6417378-X (Version None)
Quarter: 2009Q4

REPORT INFORMATION
  Report Type: 
  Country: None (occurrence: None)
  Receive Date: 20091027
  Receipt Date: 20091027
  Transmission Date: 20100525
  Serious: Yes (Hospitalization)
  Sender: FDA-Public Use
  Company Number: None

PATIENT
  Age: 61 Year
  Sex: Male
  Weight: 86.1834 kg

DRUGS (7)
  1. DOCETAXEL [Suspect]
     Indication: LUNG SQUAMOUS CELL CARCINOMA STAGE IV
     Dosage: 102 MG -50 MG/M^2 C1, DAYS 1 + 15 IV DRIP
     Route: 041
     Dates: start: 20090928, end: 20091012
  2. VINORELBINE [Suspect]
     Indication: LUNG SQUAMOUS CELL CARCINOMA STAGE IV
     Dosage: 72 MG -35 MG/M^2- C1, DAYS 1 + 15 IV BOLUS
     Route: 040
     Dates: start: 20090928, end: 20091012
  3. ZOFRAN [Concomitant]
  4. DEXAMETHASONE [Concomitant]
  5. DECADRON [Concomitant]
  6. CIPROFLOXACIN [Concomitant]
  7. NEULASTA [Concomitant]

REACTIONS (2)
  - DYSPNOEA EXERTIONAL [None]
  - OXYGEN SATURATION DECREASED [None]
